FAERS Safety Report 23039587 (Version 1)
Quarter: 2023Q4

REPORT INFORMATION
  Report Type: Spontaneous
  Country: CN (occurrence: CN)
  Receive Date: 20231006
  Receipt Date: 20231006
  Transmission Date: 20240110
  Serious: Yes (Death, Other)
  Sender: FDA-Public Use
  Company Number: CN-SUN PHARMACEUTICAL INDUSTRIES LTD-2023R1-409973

PATIENT
  Age: 28 Year
  Sex: Female

DRUGS (6)
  1. CARBOPLATIN [Suspect]
     Active Substance: CARBOPLATIN
     Indication: Chemotherapy
     Dosage: 500 MILLIGRAM, UNK
     Route: 065
     Dates: start: 20200108
  2. CARBOPLATIN [Suspect]
     Active Substance: CARBOPLATIN
     Dosage: 500 MILLIGRAM, UNK
     Route: 065
     Dates: start: 20200130
  3. PEMETREXED [Suspect]
     Active Substance: PEMETREXED
     Indication: Chemotherapy
     Dosage: 800 MILLIGRAM, UNK
     Route: 065
     Dates: start: 20200108
  4. PEMETREXED [Suspect]
     Active Substance: PEMETREXED
     Dosage: 800 MILLIGRAM, UNK
     Route: 065
     Dates: start: 20200130
  5. SINTILIMAB [Concomitant]
     Active Substance: SINTILIMAB
     Indication: Chemotherapy
     Dosage: 200 MILLIGRAM
     Route: 065
     Dates: start: 20200108
  6. SINTILIMAB [Concomitant]
     Active Substance: SINTILIMAB
     Dosage: 200 MILLIGRAM, UNK
     Route: 065
     Dates: start: 20200130

REACTIONS (2)
  - Disease progression [Unknown]
  - Respiratory failure [Fatal]
